FAERS Safety Report 6727183-2 (Version None)
Quarter: 2010Q2

REPORT INFORMATION
  Report Type: 
  Country: None (occurrence: None)
  Receive Date: 20100517
  Receipt Date: 20100505
  Transmission Date: 20101027
  Serious: Yes (Hospitalization, Other)
  Sender: FDA-Public Use
  Company Number: BR-SANOFI-AVENTIS-2010SA002988

PATIENT
  Sex: Female

DRUGS (5)
  1. LANTUS [Suspect]
     Route: 058
     Dates: start: 20100101, end: 20100101
  2. LANTUS [Suspect]
     Route: 058
     Dates: start: 20080101
  3. SOLOSTAR [Suspect]
  4. BYETTA [Concomitant]
     Route: 048
     Dates: start: 20090101, end: 20100101
  5. METFORMIN HYDROCHLORIDE [Concomitant]
     Route: 048

REACTIONS (7)
  - ASTHENIA [None]
  - CORONARY ARTERY OCCLUSION [None]
  - DIZZINESS [None]
  - DRUG INEFFECTIVE [None]
  - HYPERGLYCAEMIA [None]
  - PRODUCT QUALITY ISSUE [None]
  - WEIGHT INCREASED [None]
